FAERS Safety Report 9772019 (Version 2)
Quarter: 2013Q4

REPORT INFORMATION
  Report Type: Spontaneous
  Country: US (occurrence: US)
  Receive Date: 20131219
  Receipt Date: 20131219
  Transmission Date: 20140711
  Serious: No
  Sender: FDA-Public Use
  Company Number: US-TEVA-403430USA

PATIENT
  Sex: Female

DRUGS (11)
  1. COPAXONE [Suspect]
     Indication: MULTIPLE SCLEROSIS
  2. AMPYRA [Suspect]
     Indication: GAIT DISTURBANCE
     Dosage: 20 MILLIGRAM DAILY;
     Route: 048
  3. MIRTAZAPINE [Concomitant]
  4. PROVENTIL [Concomitant]
     Route: 055
  5. TRAZODONE [Concomitant]
  6. DANTROLENE [Concomitant]
  7. SYMBICORT [Concomitant]
     Dosage: 160-4.5
  8. METHYLPREDNISOLON [Concomitant]
  9. MULTIVITAMIN [Concomitant]
  10. CENESTIN [Concomitant]
  11. CARISOPRODOL [Concomitant]

REACTIONS (3)
  - Palpitations [Not Recovered/Not Resolved]
  - Heart rate irregular [Not Recovered/Not Resolved]
  - Constipation [Not Recovered/Not Resolved]
